FAERS Safety Report 15256896 (Version 1)
Quarter: 2018Q3

REPORT INFORMATION
  Report Type: Spontaneous
  Country: ZA (occurrence: ZA)
  Receive Date: 20180808
  Receipt Date: 20180808
  Transmission Date: 20181010
  Serious: Yes (Hospitalization)
  Sender: FDA-Public Use
  Company Number: PHHY2018ZA065175

PATIENT
  Sex: Female

DRUGS (2)
  1. HEXA?BLOK [Suspect]
     Active Substance: ATENOLOL
     Indication: HYPERTENSION
     Dosage: 50 MG, UNK
     Route: 048
     Dates: start: 201802
  2. GLAUCOSAN [Suspect]
     Active Substance: TIMOLOL MALEATE
     Indication: GLAUCOMA
     Dosage: 0.5 %, UNK
     Route: 031
     Dates: start: 201802

REACTIONS (2)
  - Hypersensitivity [Unknown]
  - Hypersomnia [Unknown]
